FAERS Safety Report 8261065-2 (Version None)
Quarter: 2012Q2

REPORT INFORMATION
  Report Type: 
  Country: None (occurrence: None)
  Receive Date: 20120405
  Receipt Date: 20120329
  Transmission Date: 20120825
  Serious: Yes (Other)
  Sender: FDA-Public Use
  Company Number: PHHY2012FI027606

PATIENT
  Sex: Female

DRUGS (1)
  1. ZOLEDRONOC ACID [Suspect]
     Dosage: 5 MG, UNK
     Route: 042
     Dates: start: 20120313

REACTIONS (7)
  - MYALGIA [None]
  - ARTHRALGIA [None]
  - VOMITING [None]
  - NAUSEA [None]
  - ARRHYTHMIA [None]
  - RASH [None]
  - PYREXIA [None]
